FAERS Safety Report 6467357-1 (Version None)
Quarter: 2009Q4

REPORT INFORMATION
  Report Type: 
  Country: None (occurrence: None)
  Receive Date: 20091202
  Receipt Date: 20091120
  Transmission Date: 20100525
  Serious: Yes (Other)
  Sender: FDA-Public Use
  Company Number: CN-PFIZER INC-2009300464

PATIENT
  Age: 30 Year
  Sex: Male

DRUGS (1)
  1. CHAMPIX [Suspect]
     Indication: SMOKING CESSATION THERAPY
     Dosage: UNK
     Route: 048
     Dates: start: 20090511, end: 20090801

REACTIONS (3)
  - BLOOD GLUCOSE INCREASED [None]
  - ENDOCRINE DISORDER [None]
  - LIPIDS INCREASED [None]
